FAERS Safety Report 5745800-0 (Version None)
Quarter: 2008Q2

REPORT INFORMATION
  Report Type: 
  Country: None (occurrence: None)
  Receive Date: 20080521
  Receipt Date: 20080514
  Transmission Date: 20081010
  Serious: Yes (Other)
  Sender: FDA-Public Use
  Company Number: BR-PFIZER INC-2008042108

PATIENT
  Sex: Female
  Weight: 44 kg

DRUGS (2)
  1. DEPO-PROVERA SUSPENSION/INJ [Suspect]
     Dates: start: 20070302, end: 20070302
  2. DEPO-PROVERA SUSPENSION/INJ [Suspect]
     Dates: start: 20080228, end: 20080228

REACTIONS (6)
  - ABDOMINAL DISTENSION [None]
  - AMENORRHOEA [None]
  - FIBROMYALGIA [None]
  - MALAISE [None]
  - NAUSEA [None]
  - WEIGHT INCREASED [None]
